FAERS Safety Report 17309210 (Version 2)
Quarter: 2020Q1

REPORT INFORMATION
  Report Type: Spontaneous
  Country: CL (occurrence: CL)
  Receive Date: 20200123
  Receipt Date: 20200312
  Transmission Date: 20200409
  Serious: Yes (Other)
  Sender: FDA-Public Use
  Company Number: CL-MYLANLABS-2020M1007259

PATIENT
  Age: 36 Year
  Sex: Male

DRUGS (1)
  1. LEPONEX [Suspect]
     Active Substance: CLOZAPINE
     Indication: PRODUCT USED FOR UNKNOWN INDICATION
     Dosage: 250 MILLIGRAM, QD
     Route: 048

REACTIONS (5)
  - Thrombocytopenia [Unknown]
  - Neutrophil count decreased [Unknown]
  - Influenza [Unknown]
  - Mean platelet volume increased [Unknown]
  - Intellectual disability [Unknown]

NARRATIVE: CASE EVENT DATE: 20200304
